FAERS Safety Report 25454326 (Version 1)
Quarter: 2025Q2

REPORT INFORMATION
  Report Type: Spontaneous
  Country: GB (occurrence: GB)
  Receive Date: 20250619
  Receipt Date: 20250619
  Transmission Date: 20250716
  Serious: Yes (Other)
  Sender: BIOGEN
  Company Number: GB-BIOGEN-2025BI01314293

PATIENT
  Sex: Female

DRUGS (2)
  1. PLEGRIDY [Suspect]
     Active Substance: PEGINTERFERON BETA-1A
     Indication: Multiple sclerosis
     Route: 050
  2. VALPROATE SODIUM [Suspect]
     Active Substance: VALPROATE SODIUM
     Indication: Product used for unknown indication
     Route: 050

REACTIONS (2)
  - Pancytopenia [Unknown]
  - Multiple sclerosis [Unknown]
